FAERS Safety Report 8717483 (Version 6)
Quarter: 2013Q2

REPORT INFORMATION
  Report Type: Spontaneous
  Country: US (occurrence: US)
  Receive Date: 20120810
  Receipt Date: 20130509
  Transmission Date: 20140414
  Serious: Yes (Hospitalization, Congenital Anomaly)
  Sender: FDA-Public Use
  Company Number: US-JNJFOC-20120802683

PATIENT
  Age: 0 Year
  Sex: Male

DRUGS (6)
  1. TOPAMAX [Suspect]
     Indication: FOETAL EXPOSURE DURING PREGNANCY
     Route: 064
  2. NITROFURANTOIN MACRO [Suspect]
     Indication: FOETAL EXPOSURE DURING PREGNANCY
     Route: 064
  3. LAMOTRIGINE [Suspect]
     Indication: FOETAL EXPOSURE DURING PREGNANCY
     Route: 064
  4. FOLIC ACID [Concomitant]
     Indication: FOETAL EXPOSURE DURING PREGNANCY
     Route: 064
  5. ALL OTHER THERAPEUTICS [Concomitant]
     Indication: FOETAL EXPOSURE DURING PREGNANCY
     Route: 064
  6. PRENATAL VITAMINS [Concomitant]
     Indication: VITAMIN SUPPLEMENTATION
     Route: 065

REACTIONS (11)
  - Eustachian tube dysfunction [Unknown]
  - Patent ductus arteriosus [Not Recovered/Not Resolved]
  - Hypospadias [Unknown]
  - Hypoglycaemia [Recovered/Resolved]
  - Atrial septal defect [Not Recovered/Not Resolved]
  - Premature baby [Not Recovered/Not Resolved]
  - Chordee [Not Recovered/Not Resolved]
  - Cleft lip [Recovering/Resolving]
  - Middle ear disorder [Unknown]
  - Conductive deafness [Unknown]
  - Otitis media chronic [Unknown]
